FAERS Safety Report 4896086-0 (Version None)
Quarter: 2005Q4

REPORT INFORMATION
  Report Type: 
  Country: None (occurrence: None)
  Receive Date: 20051220
  Receipt Date: 20050830
  Transmission Date: 20060501
  Serious: Yes (Hospitalization)
  Sender: FDA-Public Use
  Company Number: US149788

PATIENT
  Age: 61 Year
  Sex: Female

DRUGS (3)
  1. ENBREL [Suspect]
     Indication: PSORIASIS
     Dosage: 25 MG, 2 IN 1 WEEKS, SC
     Route: 058
     Dates: start: 20050713, end: 20050823
  2. CALCIPOTRIOL (CALCIPOTRIOL) [Concomitant]
  3. KETOCONAZOLE [Concomitant]

REACTIONS (2)
  - CONDITION AGGRAVATED [None]
  - SQUAMOUS CELL CARCINOMA [None]
